FAERS Safety Report 9277115 (Version 1)
Quarter: 2013Q2

REPORT INFORMATION
  Report Type: Spontaneous
  Country: US (occurrence: US)
  Receive Date: 20130507
  Receipt Date: 20130507
  Transmission Date: 20140414
  Serious: Yes (Other)
  Sender: FDA-Public Use
  Company Number: US-BRISTOL-MYERS SQUIBB COMPANY-18844886

PATIENT
  Age: 70 Year
  Sex: Male

DRUGS (1)
  1. BYDUREON [Suspect]
     Route: 058

REACTIONS (1)
  - Pancreatitis [Unknown]
